FAERS Safety Report 21124054 (Version 1)
Quarter: 2022Q3

REPORT INFORMATION
  Report Type: Spontaneous
  Country: US (occurrence: US)
  Receive Date: 20220725
  Receipt Date: 20220725
  Transmission Date: 20221026
  Serious: Yes (Other)
  Sender: FDA-Public Use
  Company Number: US-NOVAST LABORATORIES INC.-2022NOV000240

PATIENT

DRUGS (1)
  1. NORETHINDRONE ACETATE AND ETHINYL ESTRADIOL [Suspect]
     Active Substance: ETHINYL ESTRADIOL\NORETHINDRONE ACETATE
     Indication: Menopause
     Dosage: 1 TABLET IN THE MORNING
     Route: 065
     Dates: start: 20220213

REACTIONS (6)
  - Cholelithiasis [Recovering/Resolving]
  - Abdominal pain [Recovering/Resolving]
  - Confusional state [Recovering/Resolving]
  - Vision blurred [Recovering/Resolving]
  - Nausea [Recovering/Resolving]
  - Fatigue [Recovering/Resolving]

NARRATIVE: CASE EVENT DATE: 20220213
